FAERS Safety Report 13055945 (Version 1)
Quarter: 2016Q4

REPORT INFORMATION
  Report Type: Report from Study
  Country: IT (occurrence: IT)
  Receive Date: 20161222
  Receipt Date: 20161222
  Transmission Date: 20170207
  Serious: Yes (Other)
  Sender: FDA-Public Use
  Company Number: IT-ALLERGAN-1682069US

PATIENT
  Age: 21 Year
  Sex: Male

DRUGS (1)
  1. CITALOPRAM HYDROBROMIDE UNK [Suspect]
     Active Substance: CITALOPRAM HYDROBROMIDE
     Indication: MIGRAINE
     Dosage: 80 MG, UNK
     Route: 048
     Dates: start: 20161129, end: 20161129

REACTIONS (6)
  - Headache [Recovering/Resolving]
  - Poisoning [Recovering/Resolving]
  - Overdose [Unknown]
  - Restlessness [Recovering/Resolving]
  - Medication error [Unknown]
  - Product use issue [Unknown]

NARRATIVE: CASE EVENT DATE: 20161129
